FAERS Safety Report 21474542 (Version 1)
Quarter: 2022Q4

REPORT INFORMATION
  Report Type: Spontaneous
  Country: US (occurrence: None)
  Receive Date: 20221018
  Receipt Date: 20221018
  Transmission Date: 20230113
  Serious: No
  Sender: FDA-Public Use
  Company Number: 2022A330995

PATIENT
  Sex: Female

DRUGS (1)
  1. FASLODEX [Suspect]
     Active Substance: FULVESTRANT
     Indication: Ovarian cancer
     Dosage: 205 MG/5ML INTRAMUSCULARLY IN EACH BUTTOCK SLOWLY ON DAYS ONE, 15 AND 29 AND ONCE MONTHLY THEREAF...
     Route: 030

REACTIONS (6)
  - Tremor [Not Recovered/Not Resolved]
  - Gait disturbance [Not Recovered/Not Resolved]
  - Abdominal distension [Recovered/Resolved]
  - Asthenia [Not Recovered/Not Resolved]
  - Neuropathy peripheral [Not Recovered/Not Resolved]
  - Product use issue [Unknown]
